FAERS Safety Report 16061455 (Version 1)
Quarter: 2019Q1

REPORT INFORMATION
  Report Type: Spontaneous
  Country: US (occurrence: US)
  Receive Date: 20190312
  Receipt Date: 20190312
  Transmission Date: 20190418
  Serious: Yes (Other)
  Sender: FDA-Public Use
  Company Number: US-ROCHE-2202250

PATIENT
  Age: 82 Year
  Sex: Female
  Weight: 66.74 kg

DRUGS (2)
  1. AVASTIN [Suspect]
     Active Substance: BEVACIZUMAB
     Indication: NEOVASCULAR AGE-RELATED MACULAR DEGENERATION
     Dosage: EVERY 4 OR 5 WEEKS ;ONGOING: UNKNOWN
     Route: 031
     Dates: start: 201805
  2. LIPITOR [Concomitant]
     Active Substance: ATORVASTATIN CALCIUM
     Indication: BLOOD CHOLESTEROL INCREASED
     Dosage: ONGOING: YES
     Route: 065

REACTIONS (5)
  - Intentional product use issue [Unknown]
  - Visual impairment [Unknown]
  - Off label use [Unknown]
  - Retinal haemorrhage [Recovered/Resolved]
  - Eye irritation [Unknown]

NARRATIVE: CASE EVENT DATE: 201808
